FAERS Safety Report 16400490 (Version 1)
Quarter: 2019Q2

REPORT INFORMATION
  Report Type: Spontaneous
  Country: US (occurrence: US)
  Receive Date: 20190606
  Receipt Date: 20190606
  Transmission Date: 20190711
  Serious: Yes (Hospitalization, Other)
  Sender: FDA-Public Use
  Company Number: US-JNJFOC-20190602641

PATIENT
  Age: 65 Year
  Sex: Female

DRUGS (1)
  1. INVOKANA [Suspect]
     Active Substance: CANAGLIFLOZIN
     Indication: PRODUCT USED FOR UNKNOWN INDICATION
     Route: 048

REACTIONS (6)
  - Limb amputation [Unknown]
  - Wound [Unknown]
  - Diabetic foot [Unknown]
  - Foot deformity [Unknown]
  - Osteomyelitis [Unknown]
  - Injury [Unknown]

NARRATIVE: CASE EVENT DATE: 201806
